FAERS Safety Report 12146590 (Version 22)
Quarter: 2017Q1

REPORT INFORMATION
  Report Type: Report from Study
  Country: VE (occurrence: VE)
  Receive Date: 20160304
  Receipt Date: 20170217
  Transmission Date: 20170428
  Serious: Yes (Death, Life-Threatening)
  Sender: FDA-Public Use
  Company Number: VE-ROCHE-1714519

PATIENT
  Age: 40 Year
  Sex: Female
  Weight: 65.4 kg

DRUGS (11)
  1. TOCILIZUMAB [Suspect]
     Active Substance: TOCILIZUMAB
     Dosage: LAST DOSE PRIOR TO SAE: 27/JAN/2016.
     Route: 058
     Dates: start: 20160113
  2. OMEPRAZOL [Concomitant]
     Active Substance: OMEPRAZOLE
     Route: 048
     Dates: start: 20150408
  3. TOCILIZUMAB [Suspect]
     Active Substance: TOCILIZUMAB
     Dosage: LAST DOSE PRIOR TO SAE: 27/JAN/2016.
     Route: 058
     Dates: start: 20160120
  4. FOLIC ACID. [Concomitant]
     Active Substance: FOLIC ACID
     Route: 048
     Dates: start: 20150408
  5. DICLOFENAC SODIUM. [Concomitant]
     Active Substance: DICLOFENAC SODIUM
     Route: 065
     Dates: start: 20150408, end: 20160203
  6. TOCILIZUMAB [Suspect]
     Active Substance: TOCILIZUMAB
     Dosage: LAST DOSE PRIOR TO SAE: 27/JAN/2016.
     Route: 058
     Dates: start: 20160106
  7. PREDNISONE. [Concomitant]
     Active Substance: PREDNISONE
     Route: 048
     Dates: start: 20130311
  8. TOCILIZUMAB [Suspect]
     Active Substance: TOCILIZUMAB
     Route: 058
     Dates: start: 20160127, end: 20160202
  9. LEFLUNOMIDE. [Suspect]
     Active Substance: LEFLUNOMIDE
     Dosage: DATE OF LAST DOSE PRIOR TO SAE: 27/JAN/2016
     Route: 002
     Dates: start: 20141021
  10. TOCILIZUMAB [Suspect]
     Active Substance: TOCILIZUMAB
     Indication: RHEUMATOID ARTHRITIS
     Dosage: LAST DOSE PRIOR TO SAE: 27/JAN/2016.
     Route: 058
     Dates: start: 20150408
  11. LEFLUNOMIDE. [Suspect]
     Active Substance: LEFLUNOMIDE
     Indication: RHEUMATOID ARTHRITIS
     Route: 002
     Dates: start: 20131210, end: 20160203

REACTIONS (2)
  - Hepatic enzyme increased [Not Recovered/Not Resolved]
  - Infection parasitic [Fatal]

NARRATIVE: CASE EVENT DATE: 20160202
